FAERS Safety Report 7584270-7 (Version None)
Quarter: 2011Q2

REPORT INFORMATION
  Report Type: 
  Country: None (occurrence: None)
  Receive Date: 20110531
  Receipt Date: 20100413
  Transmission Date: 20111010
  Serious: Yes (Life-Threatening, Hospitalization, Disabling)
  Sender: FDA-Public Use
  Company Number: WAES 1002USA03480

PATIENT
  Age: 54 Year
  Sex: Male

DRUGS (2)
  1. JANUMET [Suspect]
     Indication: DIABETES MELLITUS
     Dosage: 1000MG/50 MG/BID/PO
     Route: 048
     Dates: end: 20100218
  2. INSULIN [Concomitant]

REACTIONS (1)
  - PANCREATITIS ACUTE [None]
